FAERS Safety Report 16745818 (Version 1)
Quarter: 2019Q4

REPORT INFORMATION
  Report Type: Spontaneous
  Country: US (occurrence: US)
  Receive Date: 20190827
  Receipt Date: 20190827
  Transmission Date: 20200122
  Serious: Yes (Life-Threatening)
  Sender: FDA-Public Use
  Company Number: None

PATIENT
  Age: 51 Year
  Sex: Female
  Weight: 85.5 kg

DRUGS (1)
  1. CHANTIX [Suspect]
     Active Substance: VARENICLINE TARTRATE
     Indication: SMOKING CESSATION THERAPY
     Dosage: ?          QUANTITY:56 TABLET(S);?
     Route: 048
     Dates: start: 20190518, end: 20190623

REACTIONS (5)
  - Feeling abnormal [None]
  - Anaesthetic complication [None]
  - Suicidal ideation [None]
  - Pain [None]
  - Mental disorder [None]

NARRATIVE: CASE EVENT DATE: 20190605
